FAERS Safety Report 9976002 (Version 1)
Quarter: 2014Q1

REPORT INFORMATION
  Report Type: Spontaneous
  Country: GB (occurrence: GB)
  Receive Date: 20140306
  Receipt Date: 20140306
  Transmission Date: 20141002
  Serious: Yes (Other)
  Sender: FDA-Public Use
  Company Number: GB-BANPHARM-20142220

PATIENT
  Age: 39 Year
  Sex: Male
  Weight: 82.55 kg

DRUGS (3)
  1. IBUPROFEN UNKNOWN PRODUCT [Suspect]
     Indication: LIGAMENT SPRAIN
     Dosage: 400 MG,
     Route: 048
     Dates: start: 20140130, end: 20140202
  2. FLIXOTIDE [Concomitant]
  3. OMEPRAZOLE [Concomitant]

REACTIONS (5)
  - Discomfort [Not Recovered/Not Resolved]
  - Pruritus [Not Recovered/Not Resolved]
  - Rash maculo-papular [Not Recovered/Not Resolved]
  - Pain of skin [Not Recovered/Not Resolved]
  - Dermatitis [Not Recovered/Not Resolved]
